FAERS Safety Report 10211323 (Version 1)
Quarter: 2014Q2

REPORT INFORMATION
  Report Type: Spontaneous
  Country: US (occurrence: US)
  Receive Date: 20140602
  Receipt Date: 20140602
  Transmission Date: 20141212
  Serious: Yes (Hospitalization)
  Sender: FDA-Public Use
  Company Number: US-B.I. PHARMACEUTICALS,INC./RIDGEFIELD-2014-BI-23746BP

PATIENT
  Age: 74 Year
  Sex: Female

DRUGS (10)
  1. SPIRIVA [Suspect]
     Indication: CHRONIC OBSTRUCTIVE PULMONARY DISEASE
     Dosage: 18 MCG
     Route: 055
     Dates: start: 2008
  2. LEVOTHYROXINE [Concomitant]
     Route: 065
  3. LISINOPRIL [Concomitant]
     Route: 065
  4. FUROSEMIDE [Concomitant]
     Route: 065
  5. WARFARIN [Concomitant]
     Route: 065
  6. DILTIAZEM XR [Concomitant]
     Dosage: 180 MG
     Route: 048
  7. LIALDA [Concomitant]
     Route: 065
  8. OSCAL D3 [Concomitant]
     Route: 065
  9. VITAMIN E [Concomitant]
     Route: 065
  10. FISH OIL [Concomitant]
     Route: 065

REACTIONS (1)
  - Pleural effusion [Recovered/Resolved]
